FAERS Safety Report 7293025-2 (Version None)
Quarter: 2011Q1

REPORT INFORMATION
  Report Type: 
  Country: None (occurrence: None)
  Receive Date: 20110210
  Receipt Date: 20110210
  Transmission Date: 20110831
  Serious: Yes (Death)
  Sender: FDA-Public Use
  Company Number: None

PATIENT
  Age: 77 Year
  Sex: Male

DRUGS (8)
  1. COLCHICINES [Concomitant]
  2. METOLAZONE [Concomitant]
  3. REVLIMID [Suspect]
     Indication: MULTIPLE MYELOMA
     Dosage: 25MG QDX6D/WK 3WKS ORALLY
     Route: 048
  4. ZYMAR [Concomitant]
  5. REVLIMID [Suspect]
  6. DEXAMETHASONE [Concomitant]
  7. SIMVASTATIN [Concomitant]
  8. AMILODIPINE [Concomitant]

REACTIONS (7)
  - NO THERAPEUTIC RESPONSE [None]
  - HYPERLIPIDAEMIA [None]
  - DISEASE PROGRESSION [None]
  - HYPERTENSION [None]
  - RENAL FAILURE CHRONIC [None]
  - MULTIPLE MYELOMA [None]
  - AMYLOIDOSIS [None]
